FAERS Safety Report 6619978-0 (Version None)
Quarter: 2010Q1

REPORT INFORMATION
  Report Type: 
  Country: None (occurrence: None)
  Receive Date: 20100309
  Receipt Date: 20100225
  Transmission Date: 20100710
  Serious: Yes (Hospitalization)
  Sender: FDA-Public Use
  Company Number: NL-MEDIMMUNE-MEDI-0010664

PATIENT
  Sex: Female
  Weight: 6.13 kg

DRUGS (2)
  1. SYNAGIS [Suspect]
     Route: 030
     Dates: start: 20091007, end: 20100128
  2. SYNAGIS [Suspect]
     Route: 030
     Dates: start: 20100225, end: 20100225

REACTIONS (2)
  - DEHYDRATION [None]
  - WEIGHT DECREASED [None]
